FAERS Safety Report 13116055 (Version 1)
Quarter: 2017Q1

REPORT INFORMATION
  Report Type: Spontaneous
  Country: US (occurrence: US)
  Receive Date: 20170116
  Receipt Date: 20170116
  Transmission Date: 20170428
  Serious: Yes (Death)
  Sender: FDA-Public Use
  Company Number: US-ALVOGEN-2017-ALVOGEN-091081

PATIENT
  Age: 51 Year
  Sex: Female

DRUGS (12)
  1. SUVOREXANT. [Suspect]
     Active Substance: SUVOREXANT
     Indication: SUICIDE ATTEMPT
     Route: 048
  2. METOPROLOL. [Suspect]
     Active Substance: METOPROLOL
     Indication: SUICIDE ATTEMPT
     Route: 048
  3. GABAPENTIN. [Suspect]
     Active Substance: GABAPENTIN
     Indication: SUICIDE ATTEMPT
     Route: 048
  4. AMITRIPTYLINE [Suspect]
     Active Substance: AMITRIPTYLINE
     Indication: SUICIDE ATTEMPT
     Route: 048
  5. TRAZODONE [Suspect]
     Active Substance: TRAZODONE HYDROCHLORIDE
     Indication: SUICIDE ATTEMPT
     Route: 048
  6. POTASSIUM CHLORIDE. [Suspect]
     Active Substance: POTASSIUM CHLORIDE
     Indication: SUICIDE ATTEMPT
     Route: 048
  7. OMEPRAZOLE. [Suspect]
     Active Substance: OMEPRAZOLE
     Indication: SUICIDE ATTEMPT
     Route: 048
  8. FUROSEMIDE. [Suspect]
     Active Substance: FUROSEMIDE
     Indication: SUICIDE ATTEMPT
     Route: 048
  9. QUETIAPINE. [Suspect]
     Active Substance: QUETIAPINE
     Indication: SUICIDE ATTEMPT
     Route: 048
  10. CARISOPRODOL. [Suspect]
     Active Substance: CARISOPRODOL
     Indication: SUICIDE ATTEMPT
     Route: 048
  11. LINACLOTIDE [Suspect]
     Active Substance: LINACLOTIDE
     Indication: SUICIDE ATTEMPT
     Route: 048
  12. DICYCLOMINE [Suspect]
     Active Substance: DICYCLOMINE HYDROCHLORIDE
     Indication: SUICIDE ATTEMPT
     Route: 048

REACTIONS (1)
  - Completed suicide [Fatal]
